FAERS Safety Report 8354201-0 (Version None)
Quarter: 2012Q2

REPORT INFORMATION
  Report Type: 
  Country: None (occurrence: None)
  Receive Date: 20120511
  Receipt Date: 20120508
  Transmission Date: 20120825
  Serious: Yes (Other)
  Sender: FDA-Public Use
  Company Number: US-ROCHE-1066904

PATIENT
  Sex: Male

DRUGS (5)
  1. AMNESTEEM [Suspect]
     Dates: start: 20030520, end: 20030620
  2. ACCUTANE [Suspect]
     Indication: ACNE
     Dates: start: 20010726, end: 20011026
  3. ACCUTANE [Suspect]
     Dates: start: 20020102, end: 20020202
  4. ACCUTANE [Suspect]
     Dates: start: 20021213, end: 20030113
  5. AMNESTEEM [Suspect]
     Indication: ACNE
     Dates: start: 20030109, end: 20030208

REACTIONS (5)
  - ANXIETY [None]
  - IRRITABLE BOWEL SYNDROME [None]
  - COLITIS ULCERATIVE [None]
  - CROHN'S DISEASE [None]
  - INFLAMMATORY BOWEL DISEASE [None]
